FAERS Safety Report 6764105-2 (Version None)
Quarter: 2010Q2

REPORT INFORMATION
  Report Type: 
  Country: None (occurrence: None)
  Receive Date: 20100608
  Receipt Date: 20100527
  Transmission Date: 20101027
  Serious: Yes (Other)
  Sender: FDA-Public Use
  Company Number: 010524

PATIENT
  Sex: Male
  Weight: 85 kg

DRUGS (4)
  1. CERTOLIZUMAB PEGOL (CERTOLIZUMAB PEGOL) [Suspect]
     Indication: CROHN'S DISEASE
     Dosage: (400 MG 1X/MONTH SUBCUTANEOUS)
     Route: 058
     Dates: start: 20050520, end: 20100310
  2. PENTASA [Concomitant]
  3. BUDENOFALK [Concomitant]
  4. ZOREM /00972402/ [Concomitant]

REACTIONS (2)
  - CHOLELITHIASIS [None]
  - INTESTINAL OBSTRUCTION [None]
